FAERS Safety Report 7544991-9 (Version None)
Quarter: 2011Q2

REPORT INFORMATION
  Report Type: 
  Country: None (occurrence: None)
  Receive Date: 20110614
  Receipt Date: 20110602
  Transmission Date: 20111010
  Serious: Yes (Hospitalization)
  Sender: FDA-Public Use
  Company Number: US-BAYER-2011-048012

PATIENT
  Age: 26 Year
  Sex: Female

DRUGS (1)
  1. BEYAZ [Suspect]
     Indication: CONTRACEPTION
     Dosage: 3MG/0.02MG/0.451MG AND 0.451
     Dates: start: 20101001, end: 20101101

REACTIONS (1)
  - DEEP VEIN THROMBOSIS [None]
